FAERS Safety Report 6175876-0 (Version None)
Quarter: 2009Q2

REPORT INFORMATION
  Report Type: 
  Country: None (occurrence: None)
  Receive Date: 20090501
  Receipt Date: 20090424
  Transmission Date: 20091009
  Serious: Yes (Hospitalization)
  Sender: FDA-Public Use
  Company Number: JP-ASTRAZENECA-2009AP02680

PATIENT
  Age: 73 Year
  Sex: Female
  Weight: 49 kg

DRUGS (4)
  1. DIPRIVAN [Suspect]
     Indication: INDUCTION AND MAINTENANCE OF ANAESTHESIA
     Dosage: 3 MCG/ML
     Route: 042
     Dates: start: 20090414, end: 20090414
  2. VEEN-F [Concomitant]
     Indication: PREOPERATIVE CARE
     Dosage: DOSE UNKNOWN
     Route: 041
     Dates: start: 20090414, end: 20090414
  3. ATROPINE SULFATE [Concomitant]
     Indication: ANTICHOLINERGIC SYNDROME
     Route: 041
     Dates: start: 20090414, end: 20090414
  4. ULTIVA [Concomitant]
     Indication: ANALGESIA
     Dosage: 12 ML/H
     Route: 041
     Dates: start: 20090414, end: 20090414

REACTIONS (2)
  - BRONCHOSPASM [None]
  - EPILEPSY [None]
